FAERS Safety Report 9917335 (Version 5)
Quarter: 2014Q2

REPORT INFORMATION
  Report Type: Spontaneous
  Country: US (occurrence: US)
  Receive Date: 20140221
  Receipt Date: 20140627
  Transmission Date: 20141212
  Serious: Yes (Hospitalization, Other)
  Sender: FDA-Public Use
  Company Number: US-009507513-1203USA02676

PATIENT
  Sex: Female
  Weight: 62.13 kg

DRUGS (3)
  1. FOSAMAX [Suspect]
     Dosage: 10 MG, QD
     Route: 048
  2. FOSAMAX [Suspect]
     Dosage: 70 MG, QW
     Route: 048
  3. ALENDRONATE SODIUM [Suspect]
     Dosage: 70 MG, QW

REACTIONS (42)
  - Intramedullary rod insertion [Unknown]
  - Femur fracture [Unknown]
  - Medical device removal [Unknown]
  - Intramedullary rod insertion [Unknown]
  - Parathyroid gland operation [Unknown]
  - Femur fracture [Unknown]
  - Haemorrhagic anaemia [Recovering/Resolving]
  - Osteoporosis [Unknown]
  - Osteoarthritis [Unknown]
  - Hypertension [Unknown]
  - Cardiac murmur [Unknown]
  - Arthritis [Unknown]
  - Parkinson^s disease [Unknown]
  - Hypercholesterolaemia [Unknown]
  - Osteoarthritis [Unknown]
  - Hyperparathyroidism [Unknown]
  - Hypothyroidism [Unknown]
  - Device failure [Unknown]
  - Osteoarthritis [Unknown]
  - Spinal osteoarthritis [Unknown]
  - Osteopenia [Unknown]
  - Upper respiratory tract infection [Recovering/Resolving]
  - Smear cervix abnormal [Unknown]
  - Pulmonary mass [Unknown]
  - Hyperglycaemia [Unknown]
  - Hypercalcaemia [Unknown]
  - Cataract operation [Unknown]
  - Nasal congestion [Unknown]
  - Head injury [Unknown]
  - Gait disturbance [Unknown]
  - Essential tremor [Unknown]
  - Nocturia [Unknown]
  - Cataract [Unknown]
  - Left ventricular dysfunction [Unknown]
  - Laparoscopy [Unknown]
  - Cardiomegaly [Unknown]
  - Urinary tract disorder [Unknown]
  - Plantar fasciitis [Unknown]
  - Foot deformity [Unknown]
  - Seborrhoeic keratosis [Unknown]
  - Macular degeneration [Unknown]
  - Arthralgia [Unknown]
